FAERS Safety Report 5068360-9 (Version None)
Quarter: 2006Q3

REPORT INFORMATION
  Report Type: 
  Country: None (occurrence: None)
  Receive Date: 20060802
  Receipt Date: 20050818
  Transmission Date: 20061208
  Serious: No
  Sender: FDA-Public Use
  Company Number: US-BRISTOL-MYERS SQUIBB COMPANY-13082367

PATIENT
  Age: 70 Year
  Sex: Female
  Weight: 61 kg

DRUGS (15)
  1. COUMADIN [Suspect]
     Indication: ATRIAL FIBRILLATION
     Dosage: ONGOING AT VARYING DOSAGES SINCE APPROX. SEP-1983
     Dates: start: 19830101
  2. COUMADIN [Suspect]
     Indication: CEREBROVASCULAR ACCIDENT
     Dosage: ONGOING AT VARYING DOSAGES SINCE APPROX. SEP-1983
     Dates: start: 19830101
  3. ACTONEL [Concomitant]
  4. ASPIRIN [Concomitant]
  5. CALCIUM GLUCONATE [Concomitant]
  6. CARDIZEM CD [Concomitant]
  7. CRANACTIN [Concomitant]
     Dosage: 1-2 CAPSULES DAILY
  8. LAMICTAL [Concomitant]
     Dosage: 50 MG TABLET ONCE DAILY FOR THE FIRST WEEK; 25 MG TABLET TWICE DAILY FOR THE SECOND WEEK
  9. LOZOL [Concomitant]
  10. MULTI-VITAMIN [Concomitant]
  11. PB 8 PRO-BIOTIC ACIDOPHILUS [Concomitant]
  12. SELENIUM SULFIDE [Concomitant]
  13. SYNTHROID [Concomitant]
  14. ASCORBIC ACID [Concomitant]
     Dosage: 500 MG - 1000 MG ONCE DAILY
  15. VITAMIN E [Concomitant]
     Dosage: 400 UNITS

REACTIONS (2)
  - HAEMORRHAGE [None]
  - PRURITUS [None]
